FAERS Safety Report 7886278-0 (Version None)
Quarter: 2011Q4

REPORT INFORMATION
  Report Type: 
  Country: None (occurrence: None)
  Receive Date: 20111102
  Receipt Date: 20110629
  Transmission Date: 20120403
  Serious: No
  Sender: FDA-Public Use
  Company Number: US-AMGEN-USASP2011033285

PATIENT
  Sex: Female

DRUGS (1)
  1. ENBREL [Suspect]
     Indication: RHEUMATOID ARTHRITIS
     Dosage: 50 MG, QWK
     Dates: start: 20101201, end: 20110601

REACTIONS (7)
  - PERICARDITIS [None]
  - DISTURBANCE IN ATTENTION [None]
  - FALL [None]
  - CHEST PAIN [None]
  - HEADACHE [None]
  - BALANCE DISORDER [None]
  - DIZZINESS [None]
